FAERS Safety Report 25735294 (Version 1)
Quarter: 2025Q3

REPORT INFORMATION
  Report Type: Spontaneous
  Country: US (occurrence: None)
  Receive Date: 20250827
  Receipt Date: 20250827
  Transmission Date: 20251020
  Serious: No
  Sender: FDA-CTU
  Company Number: None

PATIENT
  Age: 64 Year
  Sex: Male
  Weight: 92.25 kg

DRUGS (15)
  1. TEMOZOLOMIDE [Suspect]
     Active Substance: TEMOZOLOMIDE
     Indication: Brain neoplasm malignant
     Route: 048
     Dates: start: 20250415
  2. TRELEGY ELLIPTA 200-62.5-25 AEP [Concomitant]
     Dates: start: 20250616
  3. ALBUTEROL; SULFATE HFA 108 AERS [Concomitant]
     Dates: start: 20250414
  4. KRILL OIL 500MG CAPS [Concomitant]
     Dates: start: 20250414
  5. SULFAMETHOXAZOLE\TRIMETHOPRIM [Concomitant]
     Active Substance: SULFAMETHOXAZOLE\TRIMETHOPRIM
     Dates: start: 20250414
  6. VITAMIN D3 125 MCG (5000 UT) CAPS [Concomitant]
     Dates: start: 20250414
  7. OMEPRAZOLE [Concomitant]
     Active Substance: OMEPRAZOLE
     Dates: start: 20250414
  8. ACETAMINOPHEN [Concomitant]
     Active Substance: ACETAMINOPHEN
     Dates: start: 20250414
  9. LOSARTAN [Concomitant]
     Active Substance: LOSARTAN
     Dates: start: 20250414
  10. FAMOTIDINE 20MG TAB [Concomitant]
     Dates: start: 20250414
  11. ONDANSETRON [Concomitant]
     Active Substance: ONDANSETRON
     Dates: start: 20250414
  12. MONTELUKAST SODIUM [Concomitant]
     Active Substance: MONTELUKAST SODIUM
     Dates: start: 20250414
  13. VITAMIN B-12 10000MCG TABS [Concomitant]
     Dates: start: 20250414
  14. CO-Q 10 OMEGA-3 FISH OIL CAPS [Concomitant]
     Dates: start: 20250414
  15. FENOFIBRATE 120MG TABS [Concomitant]
     Dates: start: 20250414

REACTIONS (4)
  - Nausea [None]
  - Decreased appetite [None]
  - Hypersomnia [None]
  - Weight decreased [None]

NARRATIVE: CASE EVENT DATE: 20250827
